FAERS Safety Report 12838571 (Version 1)
Quarter: 2016Q4

REPORT INFORMATION
  Report Type: Spontaneous
  Country: US (occurrence: US)
  Receive Date: 20161008
  Receipt Date: 20161008
  Transmission Date: 20170207
  Serious: Yes (Other)
  Sender: FDA-Public Use
  Company Number: None

PATIENT
  Age: 41 Year
  Sex: Male
  Weight: 93.44 kg

DRUGS (6)
  1. CORTICOSTEROID [Suspect]
     Active Substance: CORTICOSTEROID NOS
  2. ONDANSETRON [Concomitant]
     Active Substance: ONDANSETRON
  3. FLEXERIL [Concomitant]
     Active Substance: CYCLOBENZAPRINE HYDROCHLORIDE
  4. GABAPENTIN. [Concomitant]
     Active Substance: GABAPENTIN
  5. HYDROCODONE [Concomitant]
     Active Substance: HYDROCODONE
  6. IBUPROFEN. [Concomitant]
     Active Substance: IBUPROFEN

REACTIONS (3)
  - Drug administered at inappropriate site [None]
  - Neck pain [None]
  - Migraine [None]

NARRATIVE: CASE EVENT DATE: 20160930
